FAERS Safety Report 13420373 (Version 1)
Quarter: 2017Q2

REPORT INFORMATION
  Report Type: Spontaneous
  Country: IT (occurrence: IT)
  Receive Date: 20170408
  Receipt Date: 20170408
  Transmission Date: 20170830
  Serious: Yes (Other)
  Sender: FDA-Public Use
  Company Number: IT-TORRENT-00000887

PATIENT
  Age: 77 Year
  Sex: Male

DRUGS (2)
  1. CLOPIDOGREL [Suspect]
     Active Substance: CLOPIDOGREL BISULFATE
  2. DABIGATRAN [Suspect]
     Active Substance: DABIGATRAN

REACTIONS (3)
  - Parinaud syndrome [Unknown]
  - Diplopia [Unknown]
  - Dizziness [Unknown]
